FAERS Safety Report 9772505 (Version 1)
Quarter: 2013Q4

REPORT INFORMATION
  Report Type: Spontaneous
  Country: FR (occurrence: None)
  Receive Date: 20131217
  Receipt Date: 20131217
  Transmission Date: 20140711
  Serious: Yes (Hospitalization)
  Sender: FDA-Public Use
  Company Number: 7255301

PATIENT
  Age: 85 Year
  Sex: Female

DRUGS (6)
  1. PREVISCAN (FLUINDIONE) (FLUINDIONE) [Suspect]
     Indication: ATRIAL FIBRILLATION
     Route: 048
     Dates: end: 20021001
  2. LEVOTHROXINE SODIUM [Suspect]
     Indication: PRODUCT USED FOR UNKNOWN INDICATION
     Dosage: 150 MCG (150 MCG, 1 IN 1 D), ORAL LONG TERM
     Route: 048
  3. SEROPLEX [Suspect]
     Indication: PRODUCT USED FOR UNKNOWN INDICATION
     Dosage: 10 MG (10 MG, 1 IN 1 D), ORAL
     Route: 048
  4. AMLOR [Suspect]
     Indication: PRODUCT USED FOR UNKNOWN INDICATION
     Dosage: 5 MG (5 MG, 1 IN 1 D), ORAL
     Route: 048
  5. FUROSEMIDE [Suspect]
     Indication: PRODUCT USED FOR UNKNOWN INDICATION
     Dosage: 20 MG (20 MG, 1 IN 1 D), ORAL, ONGOING (LONG TERM)
     Route: 048
  6. CONTRAMAL [Suspect]
     Indication: PRODUCT USED FOR UNKNOWN INDICATION
     Dosage: ONGOING (LONG TERM)
     Route: 048

REACTIONS (1)
  - Subdural haematoma [None]
